FAERS Safety Report 4288817-8 (Version None)
Quarter: 2004Q1

REPORT INFORMATION
  Report Type: 
  Country: None (occurrence: None)
  Receive Date: 20040204
  Receipt Date: 20030916
  Transmission Date: 20041129
  Serious: Yes (Other)
  Sender: FDA-Public Use
  Company Number: 200323618BWH

PATIENT
  Age: 78 Year
  Sex: Male

DRUGS (5)
  1. AVELOX [Suspect]
     Indication: HERPES ZOSTER
     Dosage: 400 MG, TOTAL DAILY, ORAL
     Route: 048
     Dates: start: 20030913, end: 20030914
  2. ATENOLOL [Concomitant]
  3. LASIX [Concomitant]
  4. LOPROX [Concomitant]
  5. DURAGESIC [Concomitant]

REACTIONS (5)
  - ANGIONEUROTIC OEDEMA [None]
  - EYE OEDEMA [None]
  - OEDEMA [None]
  - OEDEMA MOUTH [None]
  - SWOLLEN TONGUE [None]
